FAERS Safety Report 6709664-0 (Version None)
Quarter: 2010Q2

REPORT INFORMATION
  Report Type: 
  Country: None (occurrence: None)
  Receive Date: 20100504
  Receipt Date: 20100427
  Transmission Date: 20101027
  Serious: Yes (Hospitalization)
  Sender: FDA-Public Use
  Company Number: GB-ROCHE-699538

PATIENT
  Sex: Male
  Weight: 65 kg

DRUGS (13)
  1. CAPECITABINE [Suspect]
     Indication: GASTRIC CANCER
     Dosage: DATE OF MOST RECENT ADMINISTRATION: 04 AUGUST 2009.
     Route: 048
     Dates: start: 20090729
  2. BEVACIZUMAB [Suspect]
     Indication: GASTRIC CANCER
     Dosage: DATE OF MOST RECENT ADMINISTRATION: 29 JULY 2009.
     Route: 042
     Dates: start: 20090729
  3. EPIRUBICIN [Suspect]
     Indication: GASTRIC CANCER
     Dosage: DATE OF MOST RECENT ADMINISTRATION: 29 JULY 2009.
     Route: 042
     Dates: start: 20090729
  4. CISPLATIN [Suspect]
     Indication: GASTRIC CANCER
     Dosage: DATE OF MOST RECENT ADMINISTRATION: 29 JULY 2009.
     Route: 042
     Dates: start: 20090729
  5. CALOGEN [Concomitant]
     Route: 048
     Dates: start: 20090729
  6. METOCLOPRAMIDE HYDROCHLORIDE [Concomitant]
     Route: 048
     Dates: start: 20090729
  7. ZOPIDONE [Concomitant]
     Route: 048
     Dates: start: 20090709
  8. PARACETAMOL [Concomitant]
     Route: 048
  9. RANITIDINE [Concomitant]
     Route: 048
     Dates: start: 20090729
  10. OMEPRAZOLE [Concomitant]
     Route: 048
  11. GAVISCON [Concomitant]
     Route: 048
  12. MOVICOL [Concomitant]
     Dosage: TOTAL DAILY DOSE: 1 BD PRN.
     Route: 048
     Dates: start: 20090728
  13. ENSURE [Concomitant]
     Dosage: TOTAL DAILY DOSE: 4.
     Route: 048

REACTIONS (1)
  - DYSPHAGIA [None]
